FAERS Safety Report 22196573 (Version 1)
Quarter: 2023Q2

REPORT INFORMATION
  Report Type: Spontaneous
  Country: US (occurrence: US)
  Receive Date: 20230411
  Receipt Date: 20230411
  Transmission Date: 20230721
  Serious: Yes (Hospitalization, Other)
  Sender: FDA-Public Use
  Company Number: US-MLMSERVICE-20230328-4190172-1

PATIENT
  Age: 76 Year
  Sex: Female

DRUGS (1)
  1. LEVETIRACETAM [Suspect]
     Active Substance: LEVETIRACETAM
     Indication: Partial seizures
     Dosage: 1500 MILLIGRAM, 2X/DAY (BID)

REACTIONS (2)
  - Autoimmune hepatitis [Recovering/Resolving]
  - Encephalopathy [Recovered/Resolved]
